FAERS Safety Report 6837686-8 (Version None)
Quarter: 2010Q3

REPORT INFORMATION
  Report Type: 
  Country: None (occurrence: None)
  Receive Date: 20100707
  Receipt Date: 20100702
  Transmission Date: 20110219
  Serious: Yes (Life-Threatening)
  Sender: FDA-Public Use
  Company Number: 2010SP037128

PATIENT
  Age: 51 Year
  Sex: Female

DRUGS (4)
  1. PUREGON (FOLLITROPIN BETA /01348901/) [Suspect]
     Indication: INFERTILITY
     Dates: start: 19980601, end: 19980601
  2. GONADORELIN INJ [Suspect]
     Indication: INFERTILITY
     Dosage: ; IM
     Route: 030
     Dates: start: 19961001, end: 19980101
  3. METRODINE (UROFOLLITROPIN /06269503/) [Suspect]
     Indication: INFERTILITY
     Dates: start: 19961001, end: 19970701
  4. GONAL-F [Suspect]
     Indication: INFERTILITY
     Dosage: ; SC
     Route: 058
     Dates: start: 19980101, end: 19980101

REACTIONS (2)
  - APPARENT LIFE THREATENING EVENT [None]
  - OVARIAN CANCER [None]
